FAERS Safety Report 13696900 (Version 1)
Quarter: 2017Q2

REPORT INFORMATION
  Report Type: Spontaneous
  Country: US (occurrence: US)
  Receive Date: 20170628
  Receipt Date: 20170628
  Transmission Date: 20170830
  Serious: Yes (Other)
  Sender: FDA-Public Use
  Company Number: US-BAYER-2017-008832

PATIENT
  Age: 65 Year
  Sex: Male

DRUGS (4)
  1. LOXAPINE. [Concomitant]
     Active Substance: LOXAPINE
  2. QUETIAPINE. [Concomitant]
     Active Substance: QUETIAPINE
  3. BAYER LOW DOSE [Suspect]
     Active Substance: ASPIRIN
     Dosage: 1-2 DF, QD
     Route: 048
     Dates: start: 2014, end: 2016
  4. MELLARIL [Concomitant]
     Active Substance: THIORIDAZINE HYDROCHLORIDE

REACTIONS (7)
  - Chest pain [None]
  - Product use in unapproved indication [Unknown]
  - Intentional product misuse [None]
  - Chest pain [Recovered/Resolved]
  - Off label use [Unknown]
  - Wrong technique in product usage process [Unknown]
  - Chest discomfort [Unknown]
